FAERS Safety Report 7309608-7 (Version None)
Quarter: 2011Q1

REPORT INFORMATION
  Report Type: 
  Country: None (occurrence: None)
  Receive Date: 20110223
  Receipt Date: 20110210
  Transmission Date: 20110831
  Serious: Yes (Other)
  Sender: FDA-Public Use
  Company Number: CO-BAYER-2011-013121

PATIENT
  Sex: Male

DRUGS (1)
  1. ULTRAVIST? 300 [Suspect]
     Indication: PRODUCT USED FOR UNKNOWN INDICATION
     Dosage: DAILY DOSE 100 ML
     Dates: start: 20110202, end: 20110202

REACTIONS (5)
  - LYMPHADENOPATHY [None]
  - URTICARIA [None]
  - PRURITUS [None]
  - DYSPNOEA [None]
  - FACE OEDEMA [None]
